FAERS Safety Report 7984252-7 (Version None)
Quarter: 2011Q4

REPORT INFORMATION
  Report Type: 
  Country: None (occurrence: None)
  Receive Date: 20111214
  Receipt Date: 20111129
  Transmission Date: 20120403
  Serious: Yes (Other)
  Sender: FDA-Public Use
  Company Number: 1000023693

PATIENT
  Age: 65 Year
  Sex: Female

DRUGS (5)
  1. OXYGEN [Concomitant]
  2. SPIRIVA [Concomitant]
  3. ALENIA [Concomitant]
  4. ROFLUMILAST (ROFLUMILAST) (TABLETS) [Suspect]
     Indication: CHRONIC OBSTRUCTIVE PULMONARY DISEASE
     Dosage: 1 DOSAGE FORM (1 DOSAGE FORMS, 1 IN 1 D),ORAL
     Route: 048
     Dates: start: 20110801, end: 20110801
  5. METFORMIN [Concomitant]

REACTIONS (2)
  - DRUG HYPERSENSITIVITY [None]
  - ANGIOEDEMA [None]
